FAERS Safety Report 6046717-7 (Version None)
Quarter: 2009Q1

REPORT INFORMATION
  Report Type: 
  Country: None (occurrence: None)
  Receive Date: 20090122
  Receipt Date: 20090114
  Transmission Date: 20090719
  Serious: Yes (Other)
  Sender: FDA-Public Use
  Company Number: US-ASTRAZENECA-2008UW19186

PATIENT
  Age: 51 Year
  Sex: Female
  Weight: 72.6 kg

DRUGS (2)
  1. SYMBICORT [Suspect]
     Indication: HYPERSENSITIVITY
     Dosage: 1 PUFF
     Route: 055
  2. ALBUTEROL [Concomitant]

REACTIONS (5)
  - ASTHENIA [None]
  - CEREBROVASCULAR ACCIDENT [None]
  - EYE DISORDER [None]
  - HEADACHE [None]
  - VISION BLURRED [None]
